FAERS Safety Report 4962841-1 (Version None)
Quarter: 2006Q1

REPORT INFORMATION
  Report Type: 
  Country: None (occurrence: None)
  Receive Date: 20060331
  Receipt Date: 20060321
  Transmission Date: 20060701
  Serious: Yes (Hospitalization)
  Sender: FDA-Public Use
  Company Number: 2005S1000860

PATIENT
  Age: 29 Day
  Sex: Male

DRUGS (10)
  1. INOMAX [Suspect]
     Indication: LUNG DISORDER
     Dosage: DOSE, FORM, ROUTE AND FREQUENCY, 5 PPM; INH_GAS;INH;CONT; INH
     Route: 055
     Dates: start: 20051029, end: 20051116
  2. INOMAX [Suspect]
     Indication: PROPHYLAXIS
     Dosage: DOSE, FORM, ROUTE AND FREQUENCY, 5 PPM; INH_GAS;INH;CONT; INH
     Route: 055
     Dates: start: 20051029, end: 20051116
  3. CEFOTAXIME SODIUM [Concomitant]
  4. METRONIDAZOLE [Concomitant]
  5. VANCOMYCIN [Concomitant]
  6. FENTANYL [Concomitant]
  7. DOPAMINE HCL [Concomitant]
  8. ACETAMINOPHEN [Concomitant]
  9. RANITIDINE [Concomitant]
  10. FUROSEMIDE [Concomitant]

REACTIONS (4)
  - NECROTISING ENTEROCOLITIS NEONATAL [None]
  - NEONATAL DISORDER [None]
  - NEONATAL INTESTINAL OBSTRUCTION [None]
  - PERITONITIS [None]
